FAERS Safety Report 14185667 (Version 1)
Quarter: 2017Q4

REPORT INFORMATION
  Report Type: Spontaneous
  Country: US (occurrence: US)
  Receive Date: 20171112
  Receipt Date: 20171112
  Transmission Date: 20180321
  Serious: Yes (Disabling)
  Sender: FDA-Public Use
  Company Number: None

PATIENT
  Weight: 90 kg

DRUGS (12)
  1. MULTIVITAMIN [Concomitant]
     Active Substance: VITAMINS
  2. POTASSIUM [Concomitant]
     Active Substance: POTASSIUM
  3. VITAMIN B COMPLEX [Concomitant]
     Active Substance: CYANOCOBALAMIN\DEXPANTHENOL\NIACINAMIDE\PYRIDOXINE HYDROCHLORIDE\RIBOFLAVIN 5^-PHOSPHATE SODIUM\THIAMINE HYDROCHLORIDE\VITAMIN B COMPLEX
  4. METFORMIN [Concomitant]
     Active Substance: METFORMIN HYDROCHLORIDE
  5. GLIPIZIDE. [Concomitant]
     Active Substance: GLIPIZIDE
  6. VITAMIN C [Concomitant]
     Active Substance: ASCORBIC ACID
  7. SIMVASTATIN. [Suspect]
     Active Substance: SIMVASTATIN
     Indication: BLOOD CHOLESTEROL INCREASED
     Route: 048
     Dates: start: 20120801, end: 20150829
  8. LOSARTAN POTASSIUM. [Concomitant]
     Active Substance: LOSARTAN POTASSIUM
  9. VITAMIN K2 [Concomitant]
     Active Substance: MENAQUINONE 6
  10. SIMVASTATIN. [Suspect]
     Active Substance: SIMVASTATIN
     Indication: THROMBOSIS PROPHYLAXIS
     Route: 048
     Dates: start: 20120801, end: 20150829
  11. UBIQUINOL [Concomitant]
     Active Substance: UBIQUINOL
  12. TUMERIC. [Concomitant]

REACTIONS (17)
  - Erectile dysfunction [None]
  - Pain in extremity [None]
  - Balance disorder [None]
  - Arthralgia [None]
  - Amnesia [None]
  - Fine motor skill dysfunction [None]
  - Middle insomnia [None]
  - Neuropathy peripheral [None]
  - Neck pain [None]
  - Blood glucose increased [None]
  - Tinnitus [None]
  - Gait inability [None]
  - Myopathy [None]
  - Fatigue [None]
  - Myocardial infarction [None]
  - Headache [None]
  - Documented hypersensitivity to administered product [None]

NARRATIVE: CASE EVENT DATE: 20120815
